FAERS Safety Report 5004347-X (Version None)
Quarter: 2006Q2

REPORT INFORMATION
  Report Type: 
  Country: None (occurrence: None)
  Receive Date: 20060517
  Receipt Date: 20060512
  Transmission Date: 20061013
  Serious: Yes (Hospitalization)
  Sender: FDA-Public Use
  Company Number: 2005SP001183

PATIENT
  Age: 31 Year
  Sex: Female

DRUGS (8)
  1. WELLBUTRIN XL [Suspect]
     Indication: DRUG USE FOR UNKNOWN INDICATION
     Route: 048
     Dates: start: 20050614, end: 20050614
  2. AVANDIA [Suspect]
     Indication: DRUG USE FOR UNKNOWN INDICATION
     Route: 048
     Dates: start: 20050614, end: 20050614
  3. LUNESTA [Suspect]
     Indication: DRUG USE FOR UNKNOWN INDICATION
     Route: 048
     Dates: start: 20050614, end: 20050614
  4. TRANDOLAPRIL [Suspect]
     Indication: DRUG USE FOR UNKNOWN INDICATION
     Route: 065
     Dates: start: 20050614, end: 20050614
  5. VERAPAMIL [Suspect]
     Indication: DRUG USE FOR UNKNOWN INDICATION
     Route: 065
     Dates: start: 20050614, end: 20050614
  6. METFORMIN [Suspect]
     Indication: DRUG USE FOR UNKNOWN INDICATION
     Route: 065
     Dates: start: 20050614, end: 20050614
  7. LASIX [Suspect]
     Indication: DRUG USE FOR UNKNOWN INDICATION
     Route: 065
     Dates: start: 20050614, end: 20050614
  8. ALCOHOL [Suspect]
     Route: 048
     Dates: start: 20050614, end: 20050614

REACTIONS (1)
  - MULTIPLE DRUG OVERDOSE INTENTIONAL [None]
